FAERS Safety Report 26205119 (Version 1)
Quarter: 2025Q4

REPORT INFORMATION
  Report Type: Spontaneous
  Country: US (occurrence: US)
  Receive Date: 20251228
  Receipt Date: 20251228
  Transmission Date: 20260117
  Serious: Yes (Other)
  Sender: LUPIN
  Company Number: US-LUPIN PHARMACEUTICALS INC.-2025-11659

PATIENT
  Age: 48 Year
  Sex: Male

DRUGS (2)
  1. TESTOSTERONE [Interacting]
     Active Substance: TESTOSTERONE
     Indication: Hypogonadism
     Dosage: UNK
     Route: 065
  2. VOSILASARM [Interacting]
     Active Substance: VOSILASARM
     Indication: Muscle building therapy
     Dosage: UNK
     Route: 065

REACTIONS (4)
  - Arterial thrombosis [Recovered/Resolved]
  - Splenic infarction [Recovered/Resolved]
  - Renal infarct [Recovered/Resolved]
  - Drug interaction [Unknown]
